FAERS Safety Report 14033741 (Version 1)
Quarter: 2017Q4

REPORT INFORMATION
  Report Type: Report from Study
  Country: CA (occurrence: CA)
  Receive Date: 20171003
  Receipt Date: 20171003
  Transmission Date: 20180321
  Serious: Yes (Death, Other)
  Sender: FDA-Public Use
  Company Number: PHHY2014CA123938

PATIENT
  Sex: Male

DRUGS (5)
  1. GLEEVEC [Suspect]
     Active Substance: IMATINIB MESYLATE
     Dosage: 800 MG, QD
     Route: 048
  2. GLEEVEC [Suspect]
     Active Substance: IMATINIB MESYLATE
     Indication: GASTROINTESTINAL STROMAL TUMOUR
     Dosage: 600 MG, QD
     Route: 048
     Dates: start: 20140815
  3. GLEEVEC [Suspect]
     Active Substance: IMATINIB MESYLATE
     Dosage: 600 MG, DAILY (200 MG AT LUNCH TIME AND 400 MG IN THE EVENINGS
     Route: 048
  4. GLEEVEC [Suspect]
     Active Substance: IMATINIB MESYLATE
     Dosage: 400 MG (EIGHT HOURS APART, ONE DOSE LATE AFTERNOON WITH DINNER AND ONE DOSE IN THE LATE EVENING WITH
     Route: 048
  5. GLEEVEC [Suspect]
     Active Substance: IMATINIB MESYLATE
     Dosage: 600 MG, DAILY(100 MG IN MORNING, 100 MG IN LATE AFTERNOON AND 400 MG BEFORE BED)
     Route: 048

REACTIONS (20)
  - Malignant neoplasm progression [Unknown]
  - Fluid retention [Recovered/Resolved]
  - Nausea [Unknown]
  - Alopecia [Unknown]
  - Gastrointestinal stromal tumour [Unknown]
  - Gastric disorder [Unknown]
  - Dry skin [Unknown]
  - Skin irritation [Unknown]
  - Therapeutic response decreased [Unknown]
  - Gastrointestinal disorder [Unknown]
  - Asthenia [Unknown]
  - Paraesthesia [Unknown]
  - Haemoglobin decreased [Recovered/Resolved]
  - Drug intolerance [Unknown]
  - Death [Fatal]
  - Dysstasia [Unknown]
  - Lethargy [Unknown]
  - Abdominal discomfort [Unknown]
  - Feeling abnormal [Unknown]
  - Swelling [Recovering/Resolving]
